FAERS Safety Report 7480478-X (Version None)
Quarter: 2011Q2

REPORT INFORMATION
  Report Type: 
  Country: None (occurrence: None)
  Receive Date: 20110512
  Receipt Date: 20110512
  Transmission Date: 20111010
  Serious: Yes (Other)
  Sender: FDA-Public Use
  Company Number: None

PATIENT
  Sex: Female

DRUGS (1)
  1. COPAXONE [Suspect]
     Indication: MULTIPLE SCLEROSIS
     Dosage: 20MG DAILY SUBCUTANEOUS
     Route: 058
     Dates: start: 20110405, end: 20110510

REACTIONS (4)
  - INJECTION SITE PAIN [None]
  - DYSPNOEA [None]
  - ANXIETY [None]
  - PALPITATIONS [None]
